FAERS Safety Report 16456169 (Version 1)
Quarter: 2019Q2

REPORT INFORMATION
  Report Type: Spontaneous
  Country: US (occurrence: US)
  Receive Date: 20190620
  Receipt Date: 20190620
  Transmission Date: 20190711
  Serious: Yes (Other)
  Sender: FDA-Public Use
  Company Number: US-PFIZER INC-2019252361

PATIENT
  Age: 57 Year
  Sex: Female
  Weight: 78.47 kg

DRUGS (9)
  1. NORMAL SALINE [Concomitant]
     Active Substance: SODIUM CHLORIDE
     Dosage: UNK, AS NEEDED (1 LITER BAG DEPENDING ON HOW MUCH FLUID SHE CAN TAKE IN)
     Dates: start: 2004
  2. SKELAXIN [Suspect]
     Active Substance: METAXALONE
     Indication: MUSCLE SPASMS
  3. ROCEPHIN [Concomitant]
     Active Substance: CEFTRIAXONE SODIUM
     Indication: INFECTION
     Dosage: UNK, AS NEEDED
     Route: 042
  4. ZOFRAN [Concomitant]
     Active Substance: ONDANSETRON HYDROCHLORIDE
     Indication: VOMITING
     Dosage: 8 MG, UNK (EVERY 4-6 HOURS ALTERNATING DURING ATTACKS)
     Route: 042
     Dates: start: 2004
  5. POTASSIUM [Concomitant]
     Active Substance: POTASSIUM
     Indication: HYPOKALAEMIC SYNDROME
     Dosage: UNK, AS NEEDED
     Route: 042
  6. SKELAXIN [Suspect]
     Active Substance: METAXALONE
     Indication: MUSCLE RELAXANT THERAPY
     Dosage: 800 MG, 3X/DAY
  7. SKELAXIN [Suspect]
     Active Substance: METAXALONE
     Indication: PAIN
  8. PHENERGAN [Concomitant]
     Active Substance: PROMETHAZINE HYDROCHLORIDE
     Indication: VOMITING
     Dosage: 25 MG, AS NEEDED (EVERY 4-6 HOURS AS NEEDED)
     Route: 042
     Dates: start: 2004
  9. DEXTROSE D10 [Concomitant]
     Indication: LIVER DISORDER
     Dosage: UNK, DAILY (500 CC BAG, MINIMUM ONE A DAY)
     Route: 042
     Dates: start: 2004

REACTIONS (13)
  - Paralysis [Not Recovered/Not Resolved]
  - Condition aggravated [Unknown]
  - Weight decreased [Unknown]
  - Nutritional condition abnormal [Unknown]
  - Immunodeficiency [Unknown]
  - Spinal compression fracture [Unknown]
  - Mutism [Unknown]
  - Bone density abnormal [Unknown]
  - Body height decreased [Unknown]
  - Alopecia [Unknown]
  - Myalgia [Not Recovered/Not Resolved]
  - Malaise [Unknown]
  - Muscle spasms [Not Recovered/Not Resolved]

NARRATIVE: CASE EVENT DATE: 201812
